FAERS Safety Report 5795177-X (Version None)
Quarter: 2008Q2

REPORT INFORMATION
  Report Type: 
  Country: None (occurrence: None)
  Receive Date: 20080630
  Receipt Date: 20080530
  Transmission Date: 20081010
  Serious: No
  Sender: FDA-Public Use
  Company Number: US-BRISTOL-MYERS SQUIBB COMPANY-14210934

PATIENT
  Age: 56 Year
  Sex: Female
  Weight: 96 kg

DRUGS (5)
  1. ORENCIA [Suspect]
     Indication: RHEUMATOID ARTHRITIS
  2. METFORMIN HCL [Concomitant]
  3. SYNTHROID [Concomitant]
  4. TARKA [Concomitant]
  5. METHOTREXATE [Concomitant]

REACTIONS (3)
  - BLOOD GLUCOSE INCREASED [None]
  - LARYNGITIS [None]
  - SINUS DISORDER [None]
